FAERS Safety Report 5737955-9 (Version None)
Quarter: 2008Q2

REPORT INFORMATION
  Report Type: 
  Country: None (occurrence: None)
  Receive Date: 20080512
  Receipt Date: 20080512
  Transmission Date: 20081010
  Serious: Yes (Hospitalization)
  Sender: FDA-Public Use
  Company Number: None

PATIENT
  Sex: Female
  Weight: 56 kg

DRUGS (1)
  1. TEMOZOLOMIDE [Suspect]
     Dosage: 3960 MG

REACTIONS (2)
  - DRUG INTOLERANCE [None]
  - PLATELET COUNT DECREASED [None]
